FAERS Safety Report 11189750 (Version 1)
Quarter: 2015Q2

REPORT INFORMATION
  Report Type: Spontaneous
  Country: US (occurrence: None)
  Receive Date: 20150612
  Receipt Date: 20150612
  Transmission Date: 20150821
  Serious: Yes (Other)
  Sender: FDA-Public Use
  Company Number: None

PATIENT
  Age: 58 Year
  Sex: Female
  Weight: 68.04 kg

DRUGS (7)
  1. CHLORATRIMITAN [Concomitant]
  2. NYQUILL [Concomitant]
  3. SUDAFED [Concomitant]
     Active Substance: PSEUDOEPHEDRINE HYDROCHLORIDE
  4. IBUPROFEN. [Concomitant]
     Active Substance: IBUPROFEN
  5. LEVOFLOXACIN. [Suspect]
     Active Substance: LEVOFLOXACIN
     Indication: BRONCHITIS
     Dosage: 1 PILL ONCE DAILY TAKEN BY MOUTH
     Route: 048
     Dates: start: 20150529, end: 20150605
  6. COUGH MED [Concomitant]
  7. LEVOFLOXACIN. [Suspect]
     Active Substance: LEVOFLOXACIN
     Indication: SINUSITIS
     Dosage: 1 PILL ONCE DAILY TAKEN BY MOUTH
     Route: 048
     Dates: start: 20150529, end: 20150605

REACTIONS (2)
  - Tendon pain [None]
  - Musculoskeletal pain [None]

NARRATIVE: CASE EVENT DATE: 20150529
